FAERS Safety Report 6302087-8 (Version None)
Quarter: 2009Q3

REPORT INFORMATION
  Report Type: 
  Country: None (occurrence: None)
  Receive Date: 20090807
  Receipt Date: 20090729
  Transmission Date: 20100115
  Serious: Yes (Hospitalization, Other)
  Sender: FDA-Public Use
  Company Number: US-ELI_LILLY_AND_COMPANY-US200907006528

PATIENT
  Sex: Female
  Weight: 84.354 kg

DRUGS (7)
  1. BYETTA [Suspect]
     Indication: TYPE 2 DIABETES MELLITUS
     Dosage: 5 UG, 2/D
     Route: 058
     Dates: start: 20050101
  2. ACTOS [Concomitant]
     Indication: TYPE 2 DIABETES MELLITUS
     Dosage: 45 MG, EACH MORNING
     Route: 048
  3. DIOVAN [Concomitant]
     Indication: BLOOD PRESSURE INCREASED
     Dosage: 80 MG, 2/D
     Route: 048
  4. ASPIRIN TAB [Concomitant]
     Dosage: 81 MG, DAILY (1/D)
     Route: 048
  5. CALCIUM [Concomitant]
     Dosage: 500 MG, DAILY (1/D)
     Route: 048
     Dates: start: 20090101
  6. TRICOR [Concomitant]
     Indication: BLOOD CHOLESTEROL
     Dosage: 145 MG, DAILY (1/D)
     Route: 048
     Dates: start: 20090609, end: 20090702
  7. CO-Q10 [Concomitant]
     Indication: BLOOD CHOLESTEROL
     Dosage: 100 MG, DAILY (1/D)

REACTIONS (5)
  - CARDIAC MURMUR [None]
  - CORONARY ARTERY OCCLUSION [None]
  - DRUG HYPERSENSITIVITY [None]
  - HAEMOGLOBIN DECREASED [None]
  - RASH [None]
